FAERS Safety Report 9928180 (Version 2)
Quarter: 2015Q4

REPORT INFORMATION
  Report Type: Report from Study
  Country: US (occurrence: US)
  Receive Date: 20140227
  Receipt Date: 20151105
  Transmission Date: 20160305
  Serious: Yes (Other)
  Sender: FDA-Public Use
  Company Number: US-ROCHE-1328183

PATIENT
  Age: 79 Year
  Sex: Female

DRUGS (14)
  1. BETADINE [Concomitant]
     Active Substance: POVIDONE-IODINE
     Dosage: TO CONJUNCTIVA
     Route: 065
  2. E-MYCIN [Concomitant]
     Active Substance: ERYTHROMYCIN
  3. LIDOCAINE. [Concomitant]
     Active Substance: LIDOCAINE
     Route: 057
  4. BETADINE [Concomitant]
     Active Substance: POVIDONE-IODINE
     Route: 065
  5. KENALOG [Concomitant]
     Active Substance: TRIAMCINOLONE ACETONIDE
     Dosage: OD
     Route: 050
  6. SYSTANE (HYPROMELLOSE 2910 (4000 MPA.S)) [Concomitant]
     Active Substance: HYPROMELLOSE 2910 (4000 MPA.S)
  7. LUCENTIS [Suspect]
     Active Substance: RANIBIZUMAB
     Indication: DIABETIC RETINAL OEDEMA
  8. AVASTIN [Suspect]
     Active Substance: BEVACIZUMAB
     Indication: PRODUCT USED FOR UNKNOWN INDICATION
     Route: 065
     Dates: start: 20090820, end: 20090824
  9. MYDFRIN [Concomitant]
     Active Substance: PHENYLEPHRINE HYDROCHLORIDE
     Route: 065
  10. LUCENTIS [Suspect]
     Active Substance: RANIBIZUMAB
     Indication: DIABETIC RETINOPATHY
     Route: 050
  11. ALCAINE [Concomitant]
     Active Substance: PROPARACAINE HYDROCHLORIDE
  12. LUCENTIS [Suspect]
     Active Substance: RANIBIZUMAB
     Indication: DIABETIC EYE DISEASE
     Route: 050
  13. LIDOCAINE. [Concomitant]
     Active Substance: LIDOCAINE
     Route: 065
  14. MYDRIACYL [Concomitant]
     Active Substance: TROPICAMIDE
     Route: 065

REACTIONS (19)
  - Cataract [Unknown]
  - Off label use [Unknown]
  - Flat anterior chamber of eye [Unknown]
  - Aneurysm [Unknown]
  - Photopsia [Unknown]
  - Retinal disorder [Unknown]
  - Retinal fibrosis [Unknown]
  - Blood pressure inadequately controlled [Unknown]
  - Macular oedema [Unknown]
  - Retinal haemorrhage [Unknown]
  - Dry eye [Unknown]
  - Narrow anterior chamber angle [Unknown]
  - Diabetes mellitus inadequate control [Unknown]
  - Ophthalmological examination abnormal [Unknown]
  - Retinal scar [Unknown]
  - Cystoid macular oedema [Unknown]
  - Eye swelling [Unknown]
  - Diabetic retinopathy [Unknown]
  - Retinal exudates [Unknown]

NARRATIVE: CASE EVENT DATE: 20110922
